FAERS Safety Report 7905732-6 (Version None)
Quarter: 2011Q4

REPORT INFORMATION
  Report Type: 
  Country: None (occurrence: None)
  Receive Date: 20111108
  Receipt Date: 20111017
  Transmission Date: 20120403
  Serious: Yes (Other)
  Sender: FDA-Public Use
  Company Number: PRED20110102

PATIENT
  Age: 26 Year
  Sex: Female

DRUGS (4)
  1. PREDNISONE [Suspect]
     Indication: DERMATITIS ATOPIC
     Dosage: 5 MG/KG, 1 IN 1 D, ORAL
     Route: 048
  2. EMOLLIENTS (UNKNOWN) [Suspect]
     Indication: DERMATITIS ATOPIC
     Dosage: TOPICAL
     Route: 061
  3. CYCLOSPORINE [Suspect]
     Indication: DERMATITIS ATOPIC
     Dosage: 5 MG/KG, 1 IN 1 D, ORAL
     Route: 048
  4. CORTICOSTEROIDS (CORTICOSTEROIDS) (UNKNOWN) [Suspect]
     Indication: DERMATITIS ATOPIC
     Dosage: TOPICAL
     Route: 061

REACTIONS (7)
  - BLOOD LACTATE DEHYDROGENASE INCREASED [None]
  - HEPATOMEGALY [None]
  - DERMATITIS EXFOLIATIVE [None]
  - LYMPHADENOPATHY [None]
  - IMMUNOSUPPRESSION [None]
  - LYMPHOCYTIC INFILTRATION [None]
  - MYCOSIS FUNGOIDES [None]
